FAERS Safety Report 4989334-X (Version None)
Quarter: 2006Q1

REPORT INFORMATION
  Report Type: 
  Country: None (occurrence: None)
  Receive Date: 20060309
  Receipt Date: 20051019
  Transmission Date: 20060701
  Serious: Yes (Other)
  Sender: FDA-Public Use
  Company Number: 422286

PATIENT

DRUGS (2)
  1. ISOTRETINOIN [Suspect]
     Indication: ACNE
     Dosage: 20 MG 1 PER DAY ORAL
     Route: 048
     Dates: start: 20050930, end: 20051015
  2. DEPAKOTE [Concomitant]

REACTIONS (2)
  - NO ADVERSE EFFECT [None]
  - PREGNANCY [None]
